FAERS Safety Report 17066273 (Version 2)
Quarter: 2019Q4

REPORT INFORMATION
  Report Type: Report from Study
  Country: DE (occurrence: DE)
  Receive Date: 20191122
  Receipt Date: 20191125
  Transmission Date: 20200122
  Serious: Yes (Other)
  Sender: FDA-Public Use
  Company Number: DE-MYLANLABS-2019M1112552

PATIENT
  Sex: Female

DRUGS (3)
  1. CITALOPRAM [Concomitant]
     Active Substance: CITALOPRAM HYDROBROMIDE
     Indication: PRODUCT USED FOR UNKNOWN INDICATION
     Dosage: 10-0-0, ONCE DAILY (QD)
  2. LACOSAMIDE. [Suspect]
     Active Substance: LACOSAMIDE
     Indication: PRODUCT USED FOR UNKNOWN INDICATION
     Dosage: 200-0-200, 2X/DAY (BID)
  3. LEVETIRACETAM. [Suspect]
     Active Substance: LEVETIRACETAM
     Indication: PRODUCT USED FOR UNKNOWN INDICATION
     Dosage: 1250-0-1250, 2X/DAY (BID)

REACTIONS (2)
  - Maternal exposure during pregnancy [Recovered/Resolved]
  - Abortion spontaneous [Recovered/Resolved]
